FAERS Safety Report 5410894-9 (Version None)
Quarter: 2007Q3

REPORT INFORMATION
  Report Type: 
  Country: None (occurrence: None)
  Receive Date: 20070810
  Receipt Date: 20070731
  Transmission Date: 20080115
  Serious: Yes (Other)
  Sender: FDA-Public Use
  Company Number: SE-JNJFOC-20070702054

PATIENT
  Age: 83 Year
  Sex: Female

DRUGS (12)
  1. REMICADE [Suspect]
     Indication: TEMPORAL ARTERITIS
     Route: 042
  2. INSULIN [Concomitant]
  3. METOPROLOL SUCCINATE [Concomitant]
     Route: 048
  4. KALCIPOS D [Concomitant]
     Route: 048
  5. OMEPRAZOLE [Concomitant]
     Route: 048
  6. SIMVASTATIN [Concomitant]
     Route: 048
  7. NOVOMIX [Concomitant]
     Route: 050
  8. WARAN [Concomitant]
     Route: 048
  9. PREDNISOLONE [Concomitant]
     Route: 048
  10. FURIX [Concomitant]
     Route: 048
  11. AMILORID [Concomitant]
     Route: 048
  12. ZOPIKLON [Concomitant]
     Route: 048

REACTIONS (3)
  - CHEST DISCOMFORT [None]
  - DYSPNOEA EXERTIONAL [None]
  - SEPSIS [None]
